FAERS Safety Report 25741427 (Version 1)
Quarter: 2025Q3

REPORT INFORMATION
  Report Type: Spontaneous
  Country: US (occurrence: US)
  Receive Date: 20250829
  Receipt Date: 20250829
  Transmission Date: 20251021
  Serious: Yes (Other)
  Sender: UCB
  Company Number: US-UCBSA-2025034254

PATIENT
  Age: 82 Year
  Sex: Female
  Weight: 61.678 kg

DRUGS (1)
  1. BIMZELX [Suspect]
     Active Substance: BIMEKIZUMAB-BKZX
     Indication: Psoriatic arthropathy
     Dosage: 160 MILLIGRAM, EV 4 WEEKS
     Route: 058
     Dates: start: 202506

REACTIONS (7)
  - Cataract [Unknown]
  - Cataract operation [Unknown]
  - Urinary tract infection [Unknown]
  - Injection site erythema [Unknown]
  - Injection site warmth [Recovered/Resolved]
  - Injection site discomfort [Recovered/Resolved]
  - Erythema [Unknown]

NARRATIVE: CASE EVENT DATE: 20250601
